FAERS Safety Report 18003218 (Version 2)
Quarter: 2020Q4

REPORT INFORMATION
  Report Type: Report from Study
  Country: None (occurrence: FR)
  Receive Date: 20200710
  Receipt Date: 20201221
  Transmission Date: 20210113
  Serious: Yes (Other)
  Sender: FDA-Public Use
  Company Number: FR-ABBVIE-20K-056-3336941-00

PATIENT
  Sex: Male

DRUGS (5)
  1. DUODOPA [Suspect]
     Active Substance: CARBIDOPA\LEVODOPA
     Indication: PARKINSON^S DISEASE
     Dosage: 5.8 ML; 5.4 ML CONTINUOUS FLOW RATE
     Route: 050
     Dates: start: 201906
  2. CLOZAPINE. [Concomitant]
     Active Substance: CLOZAPINE
  3. DUODOPA [Suspect]
     Active Substance: CARBIDOPA\LEVODOPA
     Dosage: 5.5 ML CONTINUOUS FLOW RATE
     Route: 050
     Dates: start: 202010
  4. CLOZAPINE. [Concomitant]
     Active Substance: CLOZAPINE
     Indication: PRODUCT USED FOR UNKNOWN INDICATION
  5. DUODOPA [Suspect]
     Active Substance: CARBIDOPA\LEVODOPA
     Dosage: 5.2 ML CONTINUOUS FLOW RATE
     Route: 050

REACTIONS (18)
  - Fall [Unknown]
  - Depressed level of consciousness [Unknown]
  - Somnolence [Not Recovered/Not Resolved]
  - Middle insomnia [Unknown]
  - Dyskinesia [Not Recovered/Not Resolved]
  - Hallucination, visual [Recovered/Resolved]
  - Camptocormia [Unknown]
  - Balance disorder [Unknown]
  - Decreased appetite [Unknown]
  - On and off phenomenon [Unknown]
  - Depressed mood [Recovered/Resolved]
  - Parkinsonian gait [Not Recovered/Not Resolved]
  - Malaise [Unknown]
  - Poor quality sleep [Recovered/Resolved]
  - Stoma site inflammation [Unknown]
  - Tremor [Unknown]
  - Dyskinesia [Recovered/Resolved]
  - Initial insomnia [Unknown]

NARRATIVE: CASE EVENT DATE: 2020
